FAERS Safety Report 18895988 (Version 5)
Quarter: 2022Q1

REPORT INFORMATION
  Report Type: Spontaneous
  Country: GR (occurrence: GR)
  Receive Date: 20210216
  Receipt Date: 20220328
  Transmission Date: 20220423
  Serious: Yes (Hospitalization, Other)
  Sender: FDA-Public Use
  Company Number: GR-PFIZER INC-2020397328

PATIENT
  Age: 65 Year
  Sex: Female

DRUGS (3)
  1. ETANERCEPT [Suspect]
     Active Substance: ETANERCEPT
     Indication: Psoriatic arthropathy
     Dosage: UNK,SOLUTION FOR INJECTION
     Route: 065
  2. HYDROXYCHLOROQUINE [Suspect]
     Active Substance: HYDROXYCHLOROQUINE
     Indication: Psoriatic arthropathy
     Dosage: UNK
     Route: 065
  3. MIRTAZAPINE [Suspect]
     Active Substance: MIRTAZAPINE
     Indication: Progressive multifocal leukoencephalopathy
     Dosage: UNK
     Route: 065

REACTIONS (9)
  - Progressive multifocal leukoencephalopathy [Unknown]
  - Systemic lupus erythematosus [Unknown]
  - Visual impairment [Unknown]
  - Apraxia [Unknown]
  - Personality change [Unknown]
  - Hemianopia homonymous [Unknown]
  - Extensor plantar response [Unknown]
  - Immune reconstitution inflammatory syndrome [Unknown]
  - Off label use [Unknown]
